FAERS Safety Report 23079010 (Version 1)
Quarter: 2023Q4

REPORT INFORMATION
  Report Type: Spontaneous
  Country: US (occurrence: None)
  Receive Date: 20231017
  Receipt Date: 20231017
  Transmission Date: 20240110
  Serious: Yes (Hospitalization)
  Sender: FDA-Public Use
  Company Number: None

PATIENT
  Age: 69 Year
  Sex: Male
  Weight: 110 kg

DRUGS (1)
  1. ALBUTEROL\IPRATROPIUM [Suspect]
     Active Substance: ALBUTEROL\IPRATROPIUM
     Dates: start: 20230116, end: 20230116

REACTIONS (3)
  - Atrial fibrillation [None]
  - Atrial flutter [None]
  - Tachycardia [None]

NARRATIVE: CASE EVENT DATE: 20230116
